FAERS Safety Report 7668721-5 (Version None)
Quarter: 2011Q3

REPORT INFORMATION
  Report Type: 
  Country: None (occurrence: None)
  Receive Date: 20110808
  Receipt Date: 20110728
  Transmission Date: 20111222
  Serious: Yes (Hospitalization)
  Sender: FDA-Public Use
  Company Number: PL-JNJFOC-20110708408

PATIENT
  Age: 61 Year
  Sex: Female
  Weight: 80 kg

DRUGS (2)
  1. XARELTO [Suspect]
     Indication: KNEE ARTHROPLASTY
     Route: 048
     Dates: start: 20110311, end: 20110415
  2. XARELTO [Suspect]
     Route: 048

REACTIONS (5)
  - OEDEMA PERIPHERAL [None]
  - PHLEBITIS [None]
  - HYPERAESTHESIA [None]
  - INDURATION [None]
  - SKIN TIGHTNESS [None]
